FAERS Safety Report 14095888 (Version 1)
Quarter: 2017Q4

REPORT INFORMATION
  Report Type: Spontaneous
  Country: US (occurrence: US)
  Receive Date: 20171017
  Receipt Date: 20171017
  Transmission Date: 20180321
  Serious: Yes (Disabling, Other)
  Sender: FDA-Public Use
  Company Number: US-SUN PHARMACEUTICAL INDUSTRIES LTD-2017US-152268

PATIENT
  Sex: Female

DRUGS (1)
  1. TECHNETIUM TC-99M SULFUR COLLOID KIT [Suspect]
     Active Substance: TECHNETIUM TC-99M SULFUR COLLOID
     Indication: LYMPHADENECTOMY
     Dosage: UNK
     Route: 065
     Dates: start: 2015

REACTIONS (9)
  - Drug ineffective [None]
  - Lymphoedema [Unknown]
  - Product preparation error [Unknown]
  - Treatment failure [Unknown]
  - Product label issue [Unknown]
  - Impaired quality of life [Not Recovered/Not Resolved]
  - Economic problem [None]
  - Nerve injury [Unknown]
  - Insomnia [Not Recovered/Not Resolved]
